FAERS Safety Report 4277629-7 (Version None)
Quarter: 2004Q1

REPORT INFORMATION
  Report Type: 
  Country: None (occurrence: None)
  Receive Date: 20040121
  Receipt Date: 20040109
  Transmission Date: 20041129
  Serious: No
  Sender: FDA-Public Use
  Company Number: 04P-163-0247009-00

PATIENT
  Sex: 0

DRUGS (3)
  1. DEPAKOTE [Suspect]
     Dosage: 125 MG, 3 IN 1 D
  2. OLANZAPINE [Concomitant]
  3. TRAZODONE [Concomitant]

REACTIONS (3)
  - DELIRIUM [None]
  - DRUG TOXICITY [None]
  - ENCEPHALOPATHY [None]
